FAERS Safety Report 5400896-0 (Version None)
Quarter: 2007Q3

REPORT INFORMATION
  Report Type: 
  Country: None (occurrence: None)
  Receive Date: 20070725
  Receipt Date: 20070711
  Transmission Date: 20080115
  Serious: Yes (Other)
  Sender: FDA-Public Use
  Company Number: SPV1-2007-03586

PATIENT
  Sex: Female

DRUGS (1)
  1. ADDERALL XR [Suspect]
     Indication: ATTENTION DEFICIT/HYPERACTIVITY DISORDER
     Dates: end: 20070101

REACTIONS (1)
  - BENIGN INTRACRANIAL HYPERTENSION [None]
